FAERS Safety Report 24029036 (Version 2)
Quarter: 2024Q3

REPORT INFORMATION
  Report Type: Spontaneous
  Country: BR (occurrence: BR)
  Receive Date: 20240628
  Receipt Date: 20240702
  Transmission Date: 20241016
  Serious: Yes (Other)
  Sender: JOHNSON AND JOHNSON
  Company Number: BR-JNJFOC-20240651271

PATIENT
  Age: 78 Year
  Sex: Male

DRUGS (1)
  1. STELARA [Suspect]
     Active Substance: USTEKINUMAB
     Indication: Crohn^s disease
     Route: 040
     Dates: start: 20240617

REACTIONS (3)
  - Surgery [Unknown]
  - Product prescribing issue [Unknown]
  - Incorrect drug administration rate [Unknown]
